FAERS Safety Report 9696602 (Version 2)
Quarter: 2013Q4

REPORT INFORMATION
  Report Type: Spontaneous
  Country: PL (occurrence: None)
  Receive Date: 20131115
  Receipt Date: 20131220
  Transmission Date: 20140711
  Serious: Yes (Other)
  Sender: FDA-Public Use
  Company Number: 2013110025

PATIENT
  Age: 61 Year
  Sex: Female

DRUGS (3)
  1. ZOLPIDEM [Suspect]
     Indication: INSOMNIA
  2. SIBUTRAMINE [Suspect]
     Indication: OBESITY
  3. RISPERIDONE [Suspect]
     Indication: PSYCHOTIC DISORDER

REACTIONS (12)
  - Psychotic disorder [None]
  - Abnormal behaviour [None]
  - Amnesia [None]
  - Hallucination, auditory [None]
  - Persecutory delusion [None]
  - Depressed mood [None]
  - Insomnia [None]
  - Disorientation [None]
  - Anxiety [None]
  - Drug withdrawal syndrome [None]
  - Drug interaction [None]
  - Psychomotor hyperactivity [None]
